FAERS Safety Report 8984041 (Version 1)
Quarter: 2012Q4

REPORT INFORMATION
  Report Type: Spontaneous
  Country: US (occurrence: None)
  Receive Date: 20121212
  Receipt Date: 20121212
  Transmission Date: 20130627
  Serious: Yes (Death, Other)
  Sender: FDA-Public Use
  Company Number: TPA2012A08048

PATIENT
  Age: 91 Year
  Sex: Male

DRUGS (2)
  1. ACTOS (PIOGLITAZONE HYDROCHLORIDE) [Suspect]
     Indication: TYPE II DIABETES MELLITUS
     Dates: start: 200102, end: 200502
  2. LISPRO (HUMALOG) (ISULIN LISPRO) [Concomitant]

REACTIONS (1)
  - Bladder cancer [None]
